FAERS Safety Report 24365465 (Version 1)
Quarter: 2024Q3

REPORT INFORMATION
  Report Type: Spontaneous
  Country: IN (occurrence: IN)
  Receive Date: 20240926
  Receipt Date: 20240926
  Transmission Date: 20241016
  Serious: Yes (Hospitalization)
  Sender: STRIDES
  Company Number: IN-STRIDES ARCOLAB LIMITED-2024SP012190

PATIENT
  Sex: Female

DRUGS (16)
  1. IBUPROFEN [Suspect]
     Active Substance: IBUPROFEN
     Indication: Migraine
     Dosage: 400 MILLIGRAM
     Route: 065
  2. DICLOFENAC [Suspect]
     Active Substance: DICLOFENAC
     Indication: Migraine
     Dosage: 100 MILLIGRAM, 3-4?DAYS/MONTH
     Route: 065
  3. NAPROXEN [Suspect]
     Active Substance: NAPROXEN
     Indication: Migraine
     Dosage: 500 MILLIGRAM
     Route: 065
     Dates: start: 202201
  4. NAPROXEN [Suspect]
     Active Substance: NAPROXEN
     Dosage: UNK
     Route: 065
     Dates: start: 2022
  5. TOPIRAMATE [Suspect]
     Active Substance: TOPIRAMATE
     Indication: Migraine
     Dosage: 100 MILLIGRAM
     Route: 065
     Dates: start: 2022
  6. PREDNISOLONE [Suspect]
     Active Substance: PREDNISOLONE
     Indication: Migraine
     Dosage: UNK
     Route: 065
  7. AMITRIPTYLINE [Suspect]
     Active Substance: AMITRIPTYLINE
     Indication: Migraine
     Dosage: 25 MILLIGRAM, QD
     Route: 065
  8. TRAMADOL [Suspect]
     Active Substance: TRAMADOL
     Indication: Migraine
     Dosage: 50-100 MG
     Route: 065
     Dates: start: 2022
  9. PROPRANOLOL [Suspect]
     Active Substance: PROPRANOLOL HYDROCHLORIDE
     Indication: Migraine
     Dosage: 40 MILLIGRAM
     Route: 065
  10. FLUNARIZINE [Suspect]
     Active Substance: FLUNARIZINE
     Indication: Migraine
     Dosage: 10 MILLIGRAM
     Route: 065
  11. SUMATRIPTAN [Suspect]
     Active Substance: SUMATRIPTAN
     Indication: Migraine
     Dosage: 85 MILLIGRAM, 5-6?DAYS/MONTH
     Route: 065
     Dates: start: 202201
  12. RIZATRIPTAN [Suspect]
     Active Substance: RIZATRIPTAN
     Indication: Migraine
     Dosage: 10 MILLIGRAM
     Route: 065
     Dates: start: 2022
  13. ERGOTAMINE [Suspect]
     Active Substance: CAFFEINE\ERGOTAMINE\ERGOTAMINE TARTRATE
     Indication: Migraine
     Dosage: 1 MILLIGRAM
     Route: 065
     Dates: start: 2022
  14. VALPROIC ACID [Suspect]
     Active Substance: VALPROIC ACID
     Indication: Migraine
     Dosage: 1000 MILLIGRAM, QD
     Route: 065
  15. NAPROXEN SODIUM\SUMATRIPTAN SUCCINATE [Suspect]
     Active Substance: NAPROXEN SODIUM\SUMATRIPTAN SUCCINATE
     Indication: Migraine
     Dosage: UNK
     Route: 065
  16. ACETAMINOPHEN\CAFFEINE\ERGOTAMINE\PROCHLORPERAZINE [Suspect]
     Active Substance: ACETAMINOPHEN\CAFFEINE\ERGOTAMINE\PROCHLORPERAZINE
     Indication: Migraine
     Dosage: UNK
     Route: 065

REACTIONS (3)
  - Serotonin syndrome [Recovered/Resolved]
  - Drug ineffective [Unknown]
  - Off label use [Unknown]
